FAERS Safety Report 11686449 (Version 1)
Quarter: 2015Q4

REPORT INFORMATION
  Report Type: Spontaneous
  Country: FR (occurrence: FR)
  Receive Date: 20151030
  Receipt Date: 20151030
  Transmission Date: 20160304
  Serious: Yes (Hospitalization)
  Sender: FDA-Public Use
  Company Number: FR-SA-2015SA169895

PATIENT
  Age: 78 Year
  Sex: Female

DRUGS (13)
  1. AMAREL [Concomitant]
     Active Substance: GLIMEPIRIDE
     Dosage: STRENGTH: 4 UNITS UNKNOWN
  2. LASILIX [Suspect]
     Active Substance: FUROSEMIDE
     Indication: HYPERTENSION
     Route: 042
     Dates: start: 20150326, end: 20150329
  3. GLUCOPHAGE [Interacting]
     Active Substance: METFORMIN HYDROCHLORIDE
     Indication: DIABETES MELLITUS
     Route: 048
     Dates: end: 20150330
  4. NEBIVOLOL. [Concomitant]
     Active Substance: NEBIVOLOL
     Indication: BRADYCARDIA
  5. ZANIDIP [Concomitant]
     Active Substance: LERCANIDIPINE HYDROCHLORIDE
     Dosage: STRENGTH: 20 UNITS UNKNOWN
  6. THIAMAZOLE [Concomitant]
     Active Substance: METHIMAZOLE
     Dosage: STRENGTH: 5 UNITS UNKNOWN
  7. PREVISCAN [Concomitant]
     Active Substance: FLUINDIONE
  8. COVERSYL [Concomitant]
     Active Substance: PERINDOPRIL
     Dosage: STRENGTH: 10 UNITS UNKNOWN
  9. ZOCOR [Concomitant]
     Active Substance: SIMVASTATIN
     Dosage: STRENGTH: 40 (UNITS UNKNOWN)
  10. MODURETIC 5-50 [Interacting]
     Active Substance: AMILORIDE HYDROCHLORIDE\HYDROCHLOROTHIAZIDE
     Indication: HYPERTENSION
     Route: 048
     Dates: end: 20150329
  11. ULTRAVIST [Interacting]
     Active Substance: IOPROMIDE
     Route: 051
     Dates: start: 20150325, end: 20150325
  12. VICTOZA [Concomitant]
     Active Substance: LIRAGLUTIDE
     Dosage: STRENGTH: 0.6 (UNITS UNKNOWN)
  13. LEVEMIR [Concomitant]
     Active Substance: INSULIN DETEMIR
     Dosage: IN THE MORNING, STRENGTH: 22 UNITS UNKNOWN

REACTIONS (2)
  - Drug interaction [Unknown]
  - Acute kidney injury [Recovered/Resolved]

NARRATIVE: CASE EVENT DATE: 20150329
